FAERS Safety Report 22072861 (Version 1)
Quarter: 2023Q1

REPORT INFORMATION
  Report Type: Spontaneous
  Country: US (occurrence: US)
  Receive Date: 20230308
  Receipt Date: 20230308
  Transmission Date: 20230417
  Serious: Yes (Other)
  Sender: FDA-Public Use
  Company Number: US-BRISTOL-MYERS SQUIBB COMPANY-2023-030828

PATIENT
  Age: 75 Year
  Sex: Male

DRUGS (1)
  1. POMALYST [Suspect]
     Active Substance: POMALIDOMIDE
     Indication: Non-Hodgkin^s lymphoma
     Dosage: FREQ : 21 DAYS ON, OUT OF 28 DAYS CYCLE.
     Route: 048

REACTIONS (2)
  - Non-Hodgkin^s lymphoma recurrent [Unknown]
  - Off label use [Unknown]
